FAERS Safety Report 4327686-4 (Version None)
Quarter: 2004Q1

REPORT INFORMATION
  Report Type: 
  Country: None (occurrence: None)
  Receive Date: 20040331
  Receipt Date: 20030804
  Transmission Date: 20041129
  Serious: No
  Sender: FDA-Public Use
  Company Number: US-GLAXOSMITHKLINE-A0420530A

PATIENT
  Age: 46 Year
  Sex: Male

DRUGS (5)
  1. COMPAZINE [Suspect]
     Indication: NAUSEA
     Dosage: 5MG FOUR TIMES PER DAY
     Route: 048
  2. WELLBUTRIN [Suspect]
     Indication: ILL-DEFINED DISORDER
     Route: 048
     Dates: start: 20020101
  3. VICODIN [Concomitant]
     Route: 048
  4. LEXAPRO [Concomitant]
  5. UNSPECIFIED MEDICATION [Concomitant]
     Indication: BLOOD PRESSURE

REACTIONS (2)
  - DYSPHORIA [None]
  - TINNITUS [None]
